FAERS Safety Report 6587671-9 (Version None)
Quarter: 2010Q1

REPORT INFORMATION
  Report Type: 
  Country: None (occurrence: None)
  Receive Date: 20100217
  Receipt Date: 20100217
  Transmission Date: 20100710
  Serious: No
  Sender: FDA-Public Use
  Company Number: None

PATIENT
  Age: 49 Year
  Sex: Female
  Weight: 71.2147 kg

DRUGS (5)
  1. ISENTRESS [Suspect]
     Indication: HIV INFECTION
     Dosage: 400MG BID PO
     Route: 048
     Dates: start: 20091006, end: 20100216
  2. LYRICA [Suspect]
  3. LEXAPRO [Suspect]
  4. LIPITOR [Suspect]
  5. REQUIP [Suspect]

REACTIONS (1)
  - ALOPECIA [None]
